FAERS Safety Report 17878553 (Version 1)
Quarter: 2020Q2

REPORT INFORMATION
  Report Type: Report from Study
  Country: None (occurrence: BR)
  Receive Date: 20200610
  Receipt Date: 20200610
  Transmission Date: 20200714
  Serious: Yes (Other)
  Sender: FDA-Public Use
  Company Number: BR-ABBVIE-20K-020-3434565-00

PATIENT
  Sex: Female
  Weight: 72 kg

DRUGS (7)
  1. HUMIRA [Suspect]
     Active Substance: ADALIMUMAB
     Indication: RHEUMATOID ARTHRITIS
     Route: 058
     Dates: start: 20170628, end: 20191221
  2. DIAMICRON MR [Concomitant]
     Active Substance: GLICLAZIDE
     Indication: HYPERTENSION
     Dosage: HALF OF THE TABLET
  3. AMLODIPINE [Concomitant]
     Active Substance: AMLODIPINE BESYLATE
     Indication: HYPERTENSION
  4. LOSARTAN POTASSIUM. [Concomitant]
     Active Substance: LOSARTAN POTASSIUM
     Indication: HYPERTENSION
     Dosage: ONE AT MORNING AND ONE AT NIGHT
  5. PURAN [Concomitant]
     Active Substance: LEVOTHYROXINE SODIUM
     Indication: THYROID DISORDER
     Dosage: EVERYDAY AT MORNING, BEFORE BREAKFAST
  6. PURAN [Concomitant]
     Active Substance: LEVOTHYROXINE SODIUM
     Dosage: EVERYDAY AT MORNING, BEFORE BREAKFAST
  7. NEO FOLICO [Concomitant]
     Indication: ANAEMIA

REACTIONS (13)
  - Limb deformity [Not Recovered/Not Resolved]
  - Renal impairment [Recovered/Resolved]
  - Haemorrhoids [Unknown]
  - Feeling hot [Unknown]
  - Skin discolouration [Not Recovered/Not Resolved]
  - Rheumatoid nodule [Unknown]
  - Nodule [Unknown]
  - Cardiac disorder [Unknown]
  - Mass [Recovered/Resolved]
  - Pain [Unknown]
  - Phlebitis [Unknown]
  - Pruritus [Recovered/Resolved]
  - Skin burning sensation [Recovered/Resolved]

NARRATIVE: CASE EVENT DATE: 201909
